FAERS Safety Report 5693750-0 (Version None)
Quarter: 2008Q2

REPORT INFORMATION
  Report Type: 
  Country: None (occurrence: None)
  Receive Date: 20080403
  Receipt Date: 20080319
  Transmission Date: 20081010
  Serious: Yes (Other)
  Sender: FDA-Public Use
  Company Number: PHBS2008DE03581

PATIENT
  Age: 67 Year

DRUGS (2)
  1. NILOTINIB [Suspect]
     Indication: CHRONIC MYELOID LEUKAEMIA
     Dosage: 400 MG, BID
     Route: 065
  2. NILOTINIB [Suspect]
     Route: 065

REACTIONS (16)
  - ACUTE FEBRILE NEUTROPHILIC DERMATOSIS [None]
  - BLISTER [None]
  - BODY TEMPERATURE INCREASED [None]
  - C-REACTIVE PROTEIN INCREASED [None]
  - ENTEROCOCCAL INFECTION [None]
  - GRANULOMA SKIN [None]
  - HAEMORRHAGE SUBEPIDERMAL [None]
  - INFLAMMATION [None]
  - MONOCYTE MORPHOLOGY ABNORMAL [None]
  - NEUTROPENIA [None]
  - PANCYTOPENIA [None]
  - PLEURAL EFFUSION [None]
  - PNEUMONIA [None]
  - SKIN OEDEMA [None]
  - SPLENOMEGALY [None]
  - THROMBOCYTOPENIA [None]
